FAERS Safety Report 7221567-4 (Version None)
Quarter: 2011Q1

REPORT INFORMATION
  Report Type: 
  Country: None (occurrence: None)
  Receive Date: 20110112
  Receipt Date: 20110106
  Transmission Date: 20110831
  Serious: Yes (Hospitalization, Other)
  Sender: FDA-Public Use
  Company Number: US-PFIZER INC-2010082974

PATIENT
  Sex: Female

DRUGS (1)
  1. CHANTIX [Suspect]
     Indication: SMOKING CESSATION THERAPY
     Dosage: UNK
     Dates: start: 20080521, end: 20090901

REACTIONS (7)
  - IRRITABILITY [None]
  - GASTRITIS BACTERIAL [None]
  - STRESS [None]
  - DIABETES MELLITUS [None]
  - ANXIETY [None]
  - ANGINA PECTORIS [None]
  - MENTAL DISORDER [None]
